FAERS Safety Report 5298115-1 (Version None)
Quarter: 2007Q2

REPORT INFORMATION
  Report Type: 
  Country: None (occurrence: None)
  Receive Date: 20070416
  Receipt Date: 20070403
  Transmission Date: 20071010
  Serious: Yes (Death, Hospitalization)
  Sender: FDA-Public Use
  Company Number: PL-ROCHE-490685

PATIENT
  Age: 58 Year
  Sex: Female

DRUGS (1)
  1. XELODA [Suspect]
     Indication: BREAST CANCER
     Dosage: DOSAGE REGIMEN REPORTED AS: 2X4 TAB/DAY
     Route: 048

REACTIONS (6)
  - DIARRHOEA [None]
  - ENTERITIS [None]
  - MULTI-ORGAN FAILURE [None]
  - OESOPHAGITIS [None]
  - PALMAR-PLANTAR ERYTHRODYSAESTHESIA SYNDROME [None]
  - PHARYNGEAL INFLAMMATION [None]
